FAERS Safety Report 16564309 (Version 2)
Quarter: 2019Q3

REPORT INFORMATION
  Report Type: Spontaneous
  Country: US (occurrence: US)
  Receive Date: 20190712
  Receipt Date: 20190718
  Transmission Date: 20191004
  Serious: Yes (Other)
  Sender: FDA-Public Use
  Company Number: US-ASTRAZENECA-2019SE97004

PATIENT
  Age: 99 Year
  Sex: Female

DRUGS (1)
  1. LOKELMA [Suspect]
     Active Substance: SODIUM ZIRCONIUM CYCLOSILICATE
     Indication: HYPERKALAEMIA
     Dosage: 10.0G UNKNOWN
     Route: 048
     Dates: start: 20190522, end: 20190523

REACTIONS (3)
  - Oedema [Recovered/Resolved]
  - Peripheral swelling [Unknown]
  - Dysuria [Recovered/Resolved]

NARRATIVE: CASE EVENT DATE: 20190522
